FAERS Safety Report 16869201 (Version 1)
Quarter: 2019Q3

REPORT INFORMATION
  Report Type: Report from Study
  Country: BE (occurrence: BE)
  Receive Date: 20190930
  Receipt Date: 20190930
  Transmission Date: 20191005
  Serious: No
  Sender: FDA-Public Use
  Company Number: BE-ROCHE-2422500

PATIENT
  Age: 41 Year
  Sex: Female

DRUGS (7)
  1. OCRELIZUMAB. [Suspect]
     Active Substance: OCRELIZUMAB
     Indication: MULTIPLE SCLEROSIS
     Dosage: 23/SEP/2019
     Route: 042
     Dates: start: 20190909
  2. DAFALGAN [Concomitant]
     Active Substance: ACETAMINOPHEN
     Dosage: 23/SEP/2019?ONCE BEFORE INFUSION
     Route: 048
     Dates: start: 20190909
  3. CETIRIZINE [Concomitant]
     Active Substance: CETIRIZINE HYDROCHLORIDE
     Dosage: 23/SEP/2019?ONCE BEFORE INFUSION
     Route: 048
     Dates: start: 20190909
  4. VISTA D3 [Concomitant]
     Route: 048
     Dates: start: 201809
  5. PROMAGNOR [Concomitant]
     Active Substance: MAGNESIUM
     Route: 048
     Dates: start: 20190902
  6. NUVARING [Concomitant]
     Active Substance: ETHINYL ESTRADIOL\ETONOGESTREL
     Route: 067
  7. SOLU-MEDROL [Concomitant]
     Active Substance: METHYLPREDNISOLONE SODIUM SUCCINATE
     Dosage: ONCE BEFORE INFUSION?23/SEP/2019
     Route: 042
     Dates: start: 20190909

REACTIONS (2)
  - Oral herpes [Recovered/Resolved]
  - Fatigue [Recovered/Resolved]

NARRATIVE: CASE EVENT DATE: 20190909
